FAERS Safety Report 6818512-X (Version None)
Quarter: 2010Q3

REPORT INFORMATION
  Report Type: 
  Country: None (occurrence: None)
  Receive Date: 20100706
  Receipt Date: 20080407
  Transmission Date: 20110219
  Serious: No
  Sender: FDA-Public Use
  Company Number: US-PFIZER INC-2008032444

PATIENT
  Sex: Female
  Weight: 50.8 kg

DRUGS (4)
  1. AZITHROMYCIN [Suspect]
  2. KLOR-CON [Concomitant]
  3. HYDROCHLOROTHIAZIDE [Concomitant]
  4. PLAVIX [Concomitant]

REACTIONS (2)
  - RASH [None]
  - WRONG DRUG ADMINISTERED [None]
